FAERS Safety Report 7376173 (Version 2)
Quarter: 2020Q3

REPORT INFORMATION
  Report Type: Report from Study
  Country: US (occurrence: US)
  Receive Date: 20100504
  Receipt Date: 20100601
  Transmission Date: 20201104
  Serious: Yes (Other)
  Sender: FDA-Public Use
  Company Number: US-ROCHE-700243

PATIENT
  Age: 62 Year
  Sex: Female
  Weight: 79.5 kg

DRUGS (14)
  1. FLONASE [Concomitant]
     Active Substance: FLUTICASONE PROPIONATE
     Indication: ASTHMA
     Dosage: ROUTE: PUFF
     Route: 050
  2. PLAVIX [Concomitant]
     Active Substance: CLOPIDOGREL BISULFATE
  3. JANUMET [Concomitant]
     Active Substance: METFORMIN HYDROCHLORIDE\SITAGLIPTIN PHOSPHATE
  4. ALBUTEROL. [Concomitant]
     Active Substance: ALBUTEROL
     Indication: ASTHMA
     Dosage: ROUTE: PUFF
     Route: 050
  5. VICODIN [Concomitant]
     Active Substance: ACETAMINOPHEN\HYDROCODONE BITARTRATE
     Dosage: DOSE: 5/500; FREQ: Q 4?6 HOURS
     Route: 048
  6. REQUIP [Concomitant]
     Active Substance: ROPINIROLE HYDROCHLORIDE
  7. OXYGEN. [Concomitant]
     Active Substance: OXYGEN
  8. LEXAPRO [Concomitant]
     Active Substance: ESCITALOPRAM OXALATE
  9. ASPIRIN. [Concomitant]
     Active Substance: ASPIRIN
  10. GABAPENTIN. [Concomitant]
     Active Substance: GABAPENTIN
  11. IBANDRONIC ACID. [Suspect]
     Active Substance: IBANDRONIC ACID
     Indication: OSTEOPOROSIS
     Route: 048
     Dates: start: 200606, end: 20100420
  12. LISINOPRIL. [Concomitant]
     Active Substance: LISINOPRIL
  13. ALLEGRA [Concomitant]
     Active Substance: FEXOFENADINE HYDROCHLORIDE
     Route: 048
  14. MAGNESIUM [Concomitant]
     Active Substance: MAGNESIUM

REACTIONS (6)
  - Diarrhoea [Unknown]
  - Fall [Unknown]
  - Bone pain [Not Recovered/Not Resolved]
  - Upper limb fracture [Unknown]
  - Osteoporosis [Unknown]
  - Myalgia [Not Recovered/Not Resolved]

NARRATIVE: CASE EVENT DATE: 20080101
